FAERS Safety Report 8128911-4 (Version None)
Quarter: 2012Q1

REPORT INFORMATION
  Report Type: 
  Country: None (occurrence: None)
  Receive Date: 20120210
  Receipt Date: 20110624
  Transmission Date: 20120608
  Serious: No
  Sender: FDA-Public Use
  Company Number: US-BRISTOL-MYERS SQUIBB COMPANY-15741267

PATIENT
  Age: 55 Year
  Sex: Female

DRUGS (10)
  1. HYDROXYCHLOROQUINE SULFATE [Concomitant]
  2. VITAMIN D [Concomitant]
  3. ORENCIA [Suspect]
     Dosage: STARTED IN FEBRUARY 2011 AND IN THE LATER PART OF APRIL
     Dates: start: 20110202
  4. SULFASALAZINE [Concomitant]
  5. HYDROCHLOROTHIAZIDE [Concomitant]
  6. LORTAB [Concomitant]
  7. SYNTHROID [Concomitant]
  8. SIMVASTATIN [Concomitant]
  9. DILTIAZEM HCL [Concomitant]
  10. TRAMADOL HCL [Concomitant]

REACTIONS (1)
  - BLOOD URIC ACID INCREASED [None]
